FAERS Safety Report 7716686-X (Version None)
Quarter: 2011Q3

REPORT INFORMATION
  Report Type: 
  Country: None (occurrence: None)
  Receive Date: 20110829
  Receipt Date: 20110822
  Transmission Date: 20111222
  Serious: Yes (Other)
  Sender: FDA-Public Use
  Company Number: CA-JNJFOC-20110810437

PATIENT
  Sex: Female
  Weight: 117 kg

DRUGS (6)
  1. GLUMIDA [Concomitant]
  2. METHOTREXATE [Concomitant]
  3. TECTA [Concomitant]
  4. HYDROCHLOROTHIAZIDE [Concomitant]
  5. REMICADE [Suspect]
     Indication: PSORIATIC ARTHROPATHY
     Route: 042
     Dates: start: 20101101
  6. HUMULIN N [Concomitant]

REACTIONS (1)
  - KERATOCONUS [None]
